FAERS Safety Report 16875235 (Version 2)
Quarter: 2019Q4

REPORT INFORMATION
  Report Type: Spontaneous
  Country: CN (occurrence: CN)
  Receive Date: 20191001
  Receipt Date: 20191023
  Transmission Date: 20200122
  Serious: Yes (Hospitalization)
  Sender: FDA-Public Use
  Company Number: CN-NOVOPROD-686331

PATIENT
  Age: 74 Year
  Sex: Female

DRUGS (3)
  1. NOVOMIX 30 PENFILL [Suspect]
     Active Substance: INSULIN ASPART
     Dosage: DOSE INCREASED
     Route: 065
  2. NOVOMIX 30 PENFILL [Suspect]
     Active Substance: INSULIN ASPART
     Dosage: DOSE DECREASED
     Route: 058
     Dates: start: 201812
  3. NOVOMIX 30 PENFILL [Suspect]
     Active Substance: INSULIN ASPART
     Indication: TYPE 2 DIABETES MELLITUS
     Dosage: BID
     Route: 058
     Dates: start: 2003

REACTIONS (5)
  - Product container issue [Unknown]
  - Diabetes mellitus management [Unknown]
  - Hypoglycaemia [Recovered/Resolved]
  - Suspected product quality issue [Unknown]
  - Vision blurred [Unknown]

NARRATIVE: CASE EVENT DATE: 201812
